FAERS Safety Report 9156091 (Version 3)
Quarter: 2013Q2

REPORT INFORMATION
  Report Type: Spontaneous
  Country: US (occurrence: US)
  Receive Date: 20130311
  Receipt Date: 20130530
  Transmission Date: 20140414
  Serious: No
  Sender: FDA-Public Use
  Company Number: US-009507513-1303USA004793

PATIENT
  Age: 42 Year
  Sex: Female
  Weight: 58.96 kg

DRUGS (2)
  1. CLARITIN [Suspect]
     Indication: PARANASAL SINUS HYPERSECRETION
     Dosage: 10 MG, QD
     Route: 048
     Dates: start: 20130112, end: 20130315
  2. CLARITIN [Suspect]
     Indication: MEDICAL OBSERVATION

REACTIONS (1)
  - Drug ineffective [Unknown]
